FAERS Safety Report 9882647 (Version 2)
Quarter: 2014Q1

REPORT INFORMATION
  Report Type: Report from Study
  Country: ES (occurrence: ES)
  Receive Date: 20140207
  Receipt Date: 20140207
  Transmission Date: 20141002
  Serious: Yes (Other)
  Sender: FDA-Public Use
  Company Number: ES-TAKEDA-TPA2013A01182

PATIENT
  Sex: 0

DRUGS (8)
  1. FEBUXOSTAT [Suspect]
     Indication: TUMOUR LYSIS SYNDROME
     Dosage: 120 MG, QD
     Route: 048
     Dates: start: 20130118, end: 20130126
  2. PARACETAMOL [Concomitant]
     Indication: PYREXIA
     Dosage: UNK
     Route: 042
     Dates: start: 20130118, end: 20130119
  3. LORAZEPAM [Concomitant]
     Indication: INSOMNIA
     Dosage: UNK
     Route: 048
     Dates: start: 20130117
  4. CIPROFLOXACIN [Concomitant]
     Indication: ANTIBIOTIC PROPHYLAXIS
     Dosage: UNK
     Route: 048
     Dates: start: 20130117, end: 20130118
  5. FLUCONAZOLE [Concomitant]
     Indication: ANTIFUNGAL PROPHYLAXIS
     Dosage: UNK
     Route: 048
     Dates: start: 20130117, end: 20130120
  6. NYSTATIN [Concomitant]
     Indication: ANTIFUNGAL PROPHYLAXIS
     Dosage: UNK
     Route: 048
     Dates: start: 20130117
  7. BICARBONATE SODIUM [Concomitant]
     Indication: TUMOUR LYSIS SYNDROME
     Dosage: UNK
     Route: 042
     Dates: start: 20130117, end: 20130118
  8. OMEPRAZOL [Concomitant]
     Indication: GASTRITIS PROPHYLAXIS
     Dosage: UNK
     Route: 048
     Dates: start: 20130118, end: 20130120

REACTIONS (1)
  - Pneumonia [Not Recovered/Not Resolved]
